FAERS Safety Report 5220489-8 (Version None)
Quarter: 2007Q1

REPORT INFORMATION
  Report Type: 
  Country: None (occurrence: None)
  Receive Date: 20070126
  Receipt Date: 20070117
  Transmission Date: 20070707
  Serious: Yes (Death, Other)
  Sender: FDA-Public Use
  Company Number: GB-JNJFOC-20060802257

PATIENT
  Sex: Female
  Weight: 64 kg

DRUGS (7)
  1. REMICADE [Suspect]
     Indication: RHEUMATOID ARTHRITIS
     Route: 042
  2. METHOTREXATE [Concomitant]
     Route: 065
  3. BENDROFLUAZIDE [Concomitant]
     Route: 065
  4. CIMETIDINE HCL [Concomitant]
     Route: 065
  5. FOLIC ACID [Concomitant]
     Route: 065
  6. PARACETAMOL [Concomitant]
     Route: 065
  7. WELLDORM [Concomitant]
     Route: 065

REACTIONS (6)
  - CLOSTRIDIUM DIFFICILE COLITIS [None]
  - OESOPHAGEAL CARCINOMA [None]
  - POSTOPERATIVE RENAL FAILURE [None]
  - RESPIRATORY DISORDER [None]
  - SEPSIS [None]
  - THROMBOCYTOPENIA [None]
